FAERS Safety Report 7321373-6 (Version None)
Quarter: 2011Q1

REPORT INFORMATION
  Report Type: 
  Country: None (occurrence: None)
  Receive Date: 20110228
  Receipt Date: 20100212
  Transmission Date: 20110831
  Serious: No
  Sender: FDA-Public Use
  Company Number: US-PFIZER INC-2010020163

PATIENT
  Sex: Female

DRUGS (3)
  1. GEODON [Suspect]
     Dosage: 20 MG, UNK
  2. GEODON [Suspect]
     Dosage: 60 MG, 2X/DAY
  3. GEODON [Suspect]
     Dosage: 40 MG, UNK

REACTIONS (3)
  - HYPOHIDROSIS [None]
  - WEIGHT INCREASED [None]
  - FATIGUE [None]
